FAERS Safety Report 7415202-X (Version None)
Quarter: 2011Q2

REPORT INFORMATION
  Report Type: 
  Country: None (occurrence: None)
  Receive Date: 20110414
  Receipt Date: 20110408
  Transmission Date: 20111010
  Serious: Yes (Death)
  Sender: FDA-Public Use
  Company Number: ES-PFIZER INC-ES-WYE-G05909910

PATIENT
  Age: 65 Year
  Sex: Male
  Weight: 64 kg

DRUGS (15)
  1. AZTREONAM [Concomitant]
     Dosage: UNK
     Route: 050
     Dates: end: 20100403
  2. CLEXANE [Concomitant]
     Dosage: UNK
     Route: 058
     Dates: start: 20100402, end: 20100402
  3. ALMAGATE [Concomitant]
     Dosage: UNK
     Route: 048
     Dates: start: 20100317, end: 20100402
  4. DICLOFENAC [Concomitant]
     Dosage: UNK
     Route: 048
     Dates: start: 20100330, end: 20100403
  5. LEVOTHYROXINE [Concomitant]
     Dosage: UNK
     Route: 048
     Dates: start: 20100312, end: 20100402
  6. AMIKACIN [Concomitant]
     Dosage: UNK
     Route: 050
     Dates: start: 20100402, end: 20100402
  7. HYDROCORTISONE [Concomitant]
     Dosage: UNK
     Route: 061
     Dates: start: 20100330, end: 20100402
  8. ITRACONAZOLE [Concomitant]
     Dosage: UNK
     Route: 042
     Dates: end: 20100402
  9. LEVOFLOXACIN [Concomitant]
     Dosage: UNK
     Route: 048
     Dates: start: 20100313, end: 20100403
  10. LORAZEPAM [Concomitant]
     Dosage: UNK
     Route: 048
     Dates: start: 20100313, end: 20100402
  11. GEMTUZUMAB OZOGAMICIN [Suspect]
     Indication: MYELOID LEUKAEMIA
     Dosage: 5 MG, 1X/DAY
     Route: 042
     Dates: start: 20100318, end: 20100318
  12. OMEPRAZOLE [Concomitant]
     Dosage: UNK
     Route: 048
     Dates: start: 20100312, end: 20100402
  13. ZAVEDOS [Suspect]
     Dosage: 20 MG, 1X/DAY
     Route: 042
     Dates: start: 20100319, end: 20100321
  14. CYTARABINE [Suspect]
     Dosage: 170 MG, 1X/DAY
     Route: 051
     Dates: start: 20100318, end: 20100325
  15. SEGURIL [Concomitant]
     Dosage: UNK
     Route: 042
     Dates: start: 20100317, end: 20100402

REACTIONS (1)
  - HEPATIC FAILURE [None]
